FAERS Safety Report 5355802-4 (Version None)
Quarter: 2007Q2

REPORT INFORMATION
  Report Type: 
  Country: None (occurrence: None)
  Receive Date: 20070611
  Receipt Date: 20070611
  Transmission Date: 20071010
  Serious: Yes (Life-Threatening)
  Sender: FDA-Public Use
  Company Number: None

PATIENT
  Age: 47 Year
  Sex: Female
  Weight: 56.246 kg

DRUGS (1)
  1. MACROBID [Suspect]
     Indication: CYSTITIS
     Dosage: 500 MG TWICE DAILY
     Dates: start: 20070525, end: 20070525

REACTIONS (7)
  - CHILLS [None]
  - COUGH [None]
  - DYSPNOEA [None]
  - HEART RATE INCREASED [None]
  - HYPERAESTHESIA [None]
  - INFLUENZA LIKE ILLNESS [None]
  - PYREXIA [None]
